FAERS Safety Report 11309220 (Version 2)
Quarter: 2015Q3

REPORT INFORMATION
  Report Type: Spontaneous
  Country: IL (occurrence: IL)
  Receive Date: 20150724
  Receipt Date: 20150728
  Transmission Date: 20151125
  Serious: Yes (Hospitalization, Other)
  Sender: FDA-Public Use
  Company Number: IL-SA-2015SA106597

PATIENT
  Age: 30 Year
  Sex: Male

DRUGS (1)
  1. AUBAGIO [Suspect]
     Active Substance: TERIFLUNOMIDE
     Indication: MULTIPLE SCLEROSIS
     Route: 048
     Dates: start: 201411

REACTIONS (7)
  - Walking aid user [Unknown]
  - Pyrexia [Unknown]
  - Oropharyngeal pain [Unknown]
  - Muscular weakness [Recovering/Resolving]
  - Alanine aminotransferase increased [Unknown]
  - Dysphagia [Unknown]
  - Condition aggravated [Recovering/Resolving]

NARRATIVE: CASE EVENT DATE: 201507
